FAERS Safety Report 24128224 (Version 1)
Quarter: 2024Q3

REPORT INFORMATION
  Report Type: Spontaneous
  Country: US (occurrence: None)
  Receive Date: 20240723
  Receipt Date: 20240723
  Transmission Date: 20241016
  Serious: Yes (Hospitalization)
  Sender: Public
  Company Number: None

PATIENT
  Age: 66 Year
  Sex: Female

DRUGS (2)
  1. MEKTOVI [Suspect]
     Active Substance: BINIMETINIB
     Indication: Malignant melanoma
     Dosage: 45 MG EVERY 12 HOURS BY MOUTH
     Route: 048
     Dates: start: 202403
  2. BRAFTOVI [Suspect]
     Active Substance: ENCORAFENIB
     Indication: Malignant melanoma
     Dosage: FREQUENCY : DAILY;450MG ONCE DAILY BY MOUTH
     Route: 048
     Dates: start: 202403

REACTIONS (3)
  - Gastrointestinal infection [None]
  - Appendicitis [None]
  - Small intestinal obstruction [None]

NARRATIVE: CASE EVENT DATE: 20240626
